FAERS Safety Report 4660931-4 (Version None)
Quarter: 2005Q2

REPORT INFORMATION
  Report Type: 
  Country: None (occurrence: None)
  Receive Date: 20050511
  Receipt Date: 20050428
  Transmission Date: 20051028
  Serious: No
  Sender: FDA-Public Use
  Company Number: MK200412-0317-2

PATIENT
  Age: 28 Year
  Sex: Female

DRUGS (1)
  1. TECHNESCAN HDP [Suspect]
     Indication: BONE SCAN
     Dosage: 22 MCI, ONCE, IV
     Route: 042
     Dates: start: 20041025, end: 20041025

REACTIONS (2)
  - CONTRAST MEDIA REACTION [None]
  - INJECTION SITE CELLULITIS [None]
